FAERS Safety Report 8625855-6 (Version None)
Quarter: 2012Q3

REPORT INFORMATION
  Report Type: 
  Country: None (occurrence: None)
  Receive Date: 20120827
  Receipt Date: 20120823
  Transmission Date: 20120928
  Serious: Yes (Other)
  Sender: FDA-Public Use
  Company Number: IE-ROCHE-1107746

PATIENT
  Sex: Male

DRUGS (2)
  1. ACTEMRA [Suspect]
     Indication: JUVENILE ARTHRITIS
  2. INSULIN [Concomitant]

REACTIONS (2)
  - TONSILLITIS [None]
  - NEUTROPHIL COUNT DECREASED [None]
